FAERS Safety Report 20038371 (Version 1)
Quarter: 2021Q4

REPORT INFORMATION
  Report Type: Spontaneous
  Country: None (occurrence: A1)
  Receive Date: 20211105
  Receipt Date: 20211105
  Transmission Date: 20220303
  Serious: Yes (Hospitalization, Other)
  Sender: FDA-Public Use
  Company Number: A1-Avion Pharmaceuticals, LLC-2121526

PATIENT
  Age: 30 Year
  Sex: Female

DRUGS (3)
  1. GLOPERBA [Suspect]
     Active Substance: COLCHICINE
     Indication: Systemic lupus erythematosus
     Route: 065
  2. METHYLPREDNISOLONE [Concomitant]
     Active Substance: METHYLPREDNISOLONE
     Route: 065
  3. HYDROXYCHLOROQUINE SULFATE [Concomitant]
     Active Substance: HYDROXYCHLOROQUINE SULFATE
     Route: 065

REACTIONS (4)
  - Septic arthritis staphylococcal [Unknown]
  - Erythema [Unknown]
  - Swelling [Unknown]
  - Tenderness [Unknown]
